FAERS Safety Report 18868519 (Version 1)
Quarter: 2021Q1

REPORT INFORMATION
  Report Type: Spontaneous
  Country: US (occurrence: US)
  Receive Date: 20210209
  Receipt Date: 20210209
  Transmission Date: 20210420
  Serious: Yes (Other)
  Sender: FDA-Public Use
  Company Number: US-NOVOPROD-785120

PATIENT
  Sex: Female

DRUGS (2)
  1. NOVOLOG [Suspect]
     Active Substance: INSULIN ASPART
     Indication: PRODUCT USED FOR UNKNOWN INDICATION
     Dosage: UNK
     Route: 065
  2. NOVOLOG [Suspect]
     Active Substance: INSULIN ASPART
     Dosage: 14 IU, TID
     Route: 065

REACTIONS (8)
  - Nervousness [Unknown]
  - Blood glucose increased [Unknown]
  - Drug ineffective [Unknown]
  - Blindness [Unknown]
  - Hypoacusis [Unknown]
  - Vertigo [Unknown]
  - Feeling abnormal [Unknown]
  - Product quality issue [Unknown]
